FAERS Safety Report 15391137 (Version 5)
Quarter: 2018Q4

REPORT INFORMATION
  Report Type: Spontaneous
  Country: NL (occurrence: NL)
  Receive Date: 20180917
  Receipt Date: 20181121
  Transmission Date: 20190204
  Serious: Yes (Hospitalization)
  Sender: FDA-Public Use
  Company Number: NL-ACTELION-A-CH2016-138223

PATIENT
  Age: 43 Year
  Sex: Female

DRUGS (11)
  1. ACENOCOUMAROL [Concomitant]
     Active Substance: ACENOCOUMAROL
  2. OPSUMIT [Suspect]
     Active Substance: MACITENTAN
     Indication: PULMONARY ARTERIAL HYPERTENSION
     Dosage: 10 MG, QD
     Route: 048
     Dates: start: 20150701
  3. FUROSEMIDE. [Concomitant]
     Active Substance: FUROSEMIDE
  4. D CURA [Concomitant]
  5. VELETRI [Suspect]
     Active Substance: EPOPROSTENOL
     Dosage: 3125 ?G, 7/24H
     Route: 042
  6. EZETROL [Concomitant]
     Active Substance: EZETIMIBE
  7. VELETRI [Suspect]
     Active Substance: EPOPROSTENOL
     Indication: PULMONARY ARTERIAL HYPERTENSION
     Dosage: 3500 ?G 24H 100ML, UNK
     Route: 042
     Dates: start: 201506
  8. VELETRI [Suspect]
     Active Substance: EPOPROSTENOL
     Dosage: 3500 24H 100ML, UNK
     Route: 042
  9. ADCIRCA [Concomitant]
     Active Substance: TADALAFIL
     Dosage: 40 MG, UNK
  10. VELETRI [Suspect]
     Active Substance: EPOPROSTENOL
     Dosage: 3250 UG/100ML/24HR
     Route: 042
  11. SLOW K [Concomitant]
     Active Substance: POTASSIUM CHLORIDE

REACTIONS (13)
  - Malaise [Recovered/Resolved]
  - Fatigue [Unknown]
  - Abdominal pain [Unknown]
  - Underdose [Recovered/Resolved]
  - Device occlusion [Unknown]
  - Flushing [Unknown]
  - Device malfunction [Unknown]
  - Headache [Recovered/Resolved]
  - Device leakage [Unknown]
  - Incorrect dosage administered [Unknown]
  - Catheter management [Unknown]
  - Vomiting [Unknown]
  - Decreased appetite [Recovered/Resolved]

NARRATIVE: CASE EVENT DATE: 20180912
